FAERS Safety Report 12514524 (Version 4)
Quarter: 2016Q4

REPORT INFORMATION
  Report Type: Spontaneous
  Country: US (occurrence: US)
  Receive Date: 20160630
  Receipt Date: 20161104
  Transmission Date: 20170207
  Serious: Yes (Hospitalization)
  Sender: FDA-Public Use
  Company Number: US-JNJFOC-20160522585

PATIENT
  Age: 37 Year
  Sex: Female
  Weight: 132.45 kg

DRUGS (2)
  1. XARELTO [Suspect]
     Active Substance: RIVAROXABAN
     Indication: FOOT OPERATION
     Route: 048
     Dates: start: 20150601, end: 20150828
  2. XARELTO [Suspect]
     Active Substance: RIVAROXABAN
     Indication: THROMBOSIS PROPHYLAXIS
     Route: 048
     Dates: start: 20150601, end: 20150828

REACTIONS (1)
  - Uterine haemorrhage [Unknown]

NARRATIVE: CASE EVENT DATE: 20150828
